FAERS Safety Report 8158288-X (Version None)
Quarter: 2012Q1

REPORT INFORMATION
  Report Type: 
  Country: None (occurrence: None)
  Receive Date: 20120223
  Receipt Date: 20120214
  Transmission Date: 20120608
  Serious: Yes (Hospitalization)
  Sender: FDA-Public Use
  Company Number: US-BIOGENIDEC-202864

PATIENT
  Age: 63 Year
  Sex: Female
  Weight: 46 kg

DRUGS (9)
  1. AVONEX [Suspect]
     Route: 030
     Dates: start: 19990910, end: 20040101
  2. PREMPRO [Concomitant]
     Indication: HORMONE REPLACEMENT THERAPY
     Dates: start: 20040701
  3. GRAPE SEED EXTRACT [Concomitant]
     Indication: MEDICAL DIET
  4. CLONAZEPAM [Concomitant]
     Indication: RESTLESS LEGS SYNDROME
  5. HORMONE REPLACEMENT (NOS) [Concomitant]
     Indication: HORMONE REPLACEMENT THERAPY
     Dates: end: 20040701
  6. AVONEX [Suspect]
     Indication: MULTIPLE SCLEROSIS
     Route: 030
     Dates: start: 20040101
  7. PAXIL [Concomitant]
     Indication: ANXIETY
     Dates: start: 20040401
  8. VITAMIN [Concomitant]
     Indication: MEDICAL DIET
  9. AVONEX [Suspect]
     Route: 030
     Dates: start: 20040101

REACTIONS (30)
  - BREAST CYST [None]
  - FALL [None]
  - OSTEOPENIA [None]
  - MEMORY IMPAIRMENT [None]
  - ARTHRALGIA [None]
  - HOT FLUSH [None]
  - FATIGUE [None]
  - PAIN IN EXTREMITY [None]
  - INCONTINENCE [None]
  - FUNGAL INFECTION [None]
  - INJURY ASSOCIATED WITH DEVICE [None]
  - DYSSTASIA [None]
  - BONE PAIN [None]
  - INFLUENZA LIKE ILLNESS [None]
  - BREAST CANCER IN SITU [None]
  - FIBROCYSTIC BREAST DISEASE [None]
  - ABASIA [None]
  - HYPOTHYROIDISM [None]
  - HYPERAESTHESIA [None]
  - PROGRESSIVE MULTIPLE SCLEROSIS [None]
  - VISUAL IMPAIRMENT [None]
  - GAIT DISTURBANCE [None]
  - HEMIPARESIS [None]
  - OSTEOPOROSIS [None]
  - CYSTITIS [None]
  - COORDINATION ABNORMAL [None]
  - SENSORY DISTURBANCE [None]
  - NECK PAIN [None]
  - DRUG INEFFECTIVE [None]
  - CONFUSIONAL STATE [None]
